FAERS Safety Report 6058018-1 (Version None)
Quarter: 2009Q1

REPORT INFORMATION
  Report Type: 
  Country: None (occurrence: None)
  Receive Date: 20090127
  Receipt Date: 20090114
  Transmission Date: 20090719
  Serious: Yes (Hospitalization)
  Sender: FDA-Public Use
  Company Number: 233309K08USA

PATIENT
  Age: 70 Year
  Sex: Female
  Weight: 66 kg

DRUGS (4)
  1. REBIF [Suspect]
     Indication: MULTIPLE SCLEROSIS
     Dosage: 44 MCG, 3 IN 1 WEEKS, SUBCUTANEOUS
     Route: 058
     Dates: start: 20021103
  2. UNSPECIFIED ANTIDEPRESSANTS         (ANTIDEPRESSANTS) [Concomitant]
  3. PRILOSEC [Concomitant]
  4. UNSPECIFIED THYROID MEDICATION (ALL OTHER THERAPEUTIC PRODUCTS) [Concomitant]

REACTIONS (8)
  - ASPIRATION [None]
  - BLOOD COUNT ABNORMAL [None]
  - CHOKING [None]
  - DYSPHAGIA [None]
  - HYPERTENSION [None]
  - PNEUMONIA [None]
  - RASH MACULAR [None]
  - WHITE BLOOD CELL COUNT DECREASED [None]
